FAERS Safety Report 6193744-5 (Version None)
Quarter: 2009Q2

REPORT INFORMATION
  Report Type: 
  Country: None (occurrence: None)
  Receive Date: 20090518
  Receipt Date: 20090518
  Transmission Date: 20091009
  Serious: Yes (Other)
  Sender: FDA-Public Use
  Company Number: DE-PFIZER INC-2009181176

PATIENT

DRUGS (2)
  1. LYRICA [Suspect]
     Route: 048
  2. CLOZAPINE [Interacting]

REACTIONS (2)
  - DRUG INTERACTION [None]
  - TIC [None]
